FAERS Safety Report 19064652 (Version 2)
Quarter: 2021Q1

REPORT INFORMATION
  Report Type: Spontaneous
  Country: AR (occurrence: AR)
  Receive Date: 20210326
  Receipt Date: 20210331
  Transmission Date: 20210420
  Serious: Yes (Other)
  Sender: FDA-Public Use
  Company Number: AR-MYLANLABS-2021M1017875

PATIENT
  Age: 78 Year
  Sex: Female

DRUGS (1)
  1. LAPENAX [Suspect]
     Active Substance: CLOZAPINE
     Indication: COGNITIVE DISORDER
     Dosage: 250 MILLIGRAM, QD
     Dates: start: 20180912, end: 20210325

REACTIONS (5)
  - Lymphocyte count increased [Unknown]
  - Leukopenia [Unknown]
  - Monocyte count increased [Not Recovered/Not Resolved]
  - Neutropenia [Not Recovered/Not Resolved]
  - Basophil count increased [Recovered/Resolved]

NARRATIVE: CASE EVENT DATE: 20210322
